FAERS Safety Report 8620559-8 (Version None)
Quarter: 2012Q3

REPORT INFORMATION
  Report Type: 
  Country: None (occurrence: None)
  Receive Date: 20120824
  Receipt Date: 20120816
  Transmission Date: 20120928
  Serious: Yes (Life-Threatening, Hospitalization, Other)
  Sender: FDA-Public Use
  Company Number: FR-BAXTER-2012BAX009623

PATIENT
  Sex: Male
  Weight: 71 kg

DRUGS (11)
  1. KIOVIG [Suspect]
     Route: 042
     Dates: start: 20120424, end: 20120424
  2. VALACYCLOVIR HYDROCHLORIDE [Concomitant]
     Dosage: DAILY
     Route: 048
  3. RULID [Concomitant]
     Indication: LUNG INFECTION
     Dosage: DAILY
     Route: 048
     Dates: start: 20120513, end: 20120525
  4. AMOXICILLIN [Concomitant]
     Indication: LUNG INFECTION
     Dosage: DAILY
     Route: 048
     Dates: start: 20120513, end: 20120525
  5. KIOVIG [Suspect]
     Route: 042
     Dates: start: 20120229, end: 20120229
  6. NOXAFIL [Concomitant]
     Dosage: 3 TIMES DAILY
     Route: 048
     Dates: end: 20120525
  7. REVLIMID [Concomitant]
     Dosage: ACCORDING TO CYCLE
     Route: 048
     Dates: start: 20120327, end: 20120525
  8. KIOVIG [Suspect]
     Route: 042
     Dates: start: 20120320, end: 20120320
  9. KIOVIG [Suspect]
     Dosage: ADMINISTRATION OF AROUND 200ML
     Route: 042
     Dates: start: 20120525, end: 20120525
  10. DEXAMETHASONE [Concomitant]
     Dosage: DEPENDING ON CYCLE
     Route: 048
     Dates: start: 20120327, end: 20120525
  11. KIOVIG [Suspect]
     Route: 042
     Dates: start: 20120214, end: 20120214

REACTIONS (3)
  - ACUTE PULMONARY OEDEMA [None]
  - MULTIPLE MYELOMA [None]
  - HYPERTENSION [None]
